FAERS Safety Report 4264486-8 (Version None)
Quarter: 2004Q1

REPORT INFORMATION
  Report Type: 
  Country: None (occurrence: None)
  Receive Date: 20040106
  Receipt Date: 20040105
  Transmission Date: 20041129
  Serious: Yes (Other)
  Sender: FDA-Public Use
  Company Number: US-GLAXOSMITHKLINE-A0491332A

PATIENT
  Age: 37 Year
  Sex: Male

DRUGS (4)
  1. WELLBUTRIN [Suspect]
     Indication: DEPRESSION
     Dosage: 150MG TWICE PER DAY
     Route: 048
  2. VALIUM [Concomitant]
  3. ANTIDEPRESSANT (UNSPECIFIED) [Concomitant]
  4. NARCOTICS (UNSPECIFIED) [Concomitant]

REACTIONS (3)
  - AMNESIA [None]
  - BIPOLAR DISORDER [None]
  - CONVULSION [None]
